FAERS Safety Report 6135342-5 (Version None)
Quarter: 2009Q1

REPORT INFORMATION
  Report Type: 
  Country: None (occurrence: None)
  Receive Date: 20090325
  Receipt Date: 20090312
  Transmission Date: 20090719
  Serious: Yes (Other)
  Sender: FDA-Public Use
  Company Number: 232812K09USA

PATIENT
  Age: 38 Year
  Sex: Female

DRUGS (1)
  1. REBIF [Suspect]
     Indication: MULTIPLE SCLEROSIS
     Dates: end: 20090201

REACTIONS (4)
  - BILIARY CYST [None]
  - FEELING ABNORMAL [None]
  - GALLBLADDER DISORDER [None]
  - PLATELET COUNT DECREASED [None]
